FAERS Safety Report 12070389 (Version 1)
Quarter: 2016Q1

REPORT INFORMATION
  Report Type: Spontaneous
  Country: US (occurrence: US)
  Receive Date: 20160211
  Receipt Date: 20160211
  Transmission Date: 20160526
  Serious: No
  Sender: FDA-Public Use
  Company Number: US-GLAXOSMITHKLINE-US2016GSK017861

PATIENT
  Sex: Male

DRUGS (4)
  1. FARXIGA [Suspect]
     Active Substance: DAPAGLIFLOZIN PROPANEDIOL
  2. METFORMIN [Suspect]
     Active Substance: METFORMIN HYDROCHLORIDE
  3. TANZEUM [Suspect]
     Active Substance: ALBIGLUTIDE
  4. TOUJEO [Suspect]
     Active Substance: INSULIN GLARGINE

REACTIONS (4)
  - Abdominal discomfort [Unknown]
  - Stress [Unknown]
  - Circumstance or information capable of leading to medication error [Unknown]
  - Ill-defined disorder [Unknown]
